FAERS Safety Report 6004474-4 (Version None)
Quarter: 2008Q4

REPORT INFORMATION
  Report Type: 
  Country: None (occurrence: None)
  Receive Date: 20081216
  Receipt Date: 20081209
  Transmission Date: 20090506
  Serious: Yes (Death, Other)
  Sender: FDA-Public Use
  Company Number: US-BAYER-200814825BCC

PATIENT
  Sex: Male
  Weight: 136 kg

DRUGS (1)
  1. ALEVE [Suspect]
     Indication: ANALGESIA

REACTIONS (4)
  - COMPLETED SUICIDE [None]
  - GASTRIC HAEMORRHAGE [None]
  - HAEMORRHAGE [None]
  - RASH [None]
